FAERS Safety Report 14558552 (Version 2)
Quarter: 2018Q2

REPORT INFORMATION
  Report Type: Spontaneous
  Country: US (occurrence: US)
  Receive Date: 20180221
  Receipt Date: 20180418
  Transmission Date: 20180711
  Serious: No
  Sender: FDA-Public Use
  Company Number: US-TEVA-2018-US-852507

PATIENT
  Sex: Female

DRUGS (10)
  1. LISINOPRIL. [Concomitant]
     Active Substance: LISINOPRIL
  2. ESTRADIOL. [Concomitant]
     Active Substance: ESTRADIOL
  3. XOPENEX [Concomitant]
     Active Substance: LEVALBUTEROL HYDROCHLORIDE
  4. MICONAZOLE. [Suspect]
     Active Substance: MICONAZOLE
     Dates: start: 20180122
  5. ATORVASTATIN [Concomitant]
     Active Substance: ATORVASTATIN
  6. HYDROCORTISONE 2.5 % CREAM [Concomitant]
  7. TRETINOIN 0.025 %CREAM [Concomitant]
  8. HFA [Concomitant]
  9. OMEPRAZOLE. [Concomitant]
     Active Substance: OMEPRAZOLE
  10. CITALOPRAM [Concomitant]
     Active Substance: CITALOPRAM HYDROBROMIDE

REACTIONS (6)
  - Application site pruritus [Unknown]
  - Wrong drug administered [Unknown]
  - Eye irritation [Recovered/Resolved]
  - Application site erythema [Unknown]
  - Pruritus [Recovered/Resolved]
  - Ocular hyperaemia [Unknown]

NARRATIVE: CASE EVENT DATE: 20180122
